FAERS Safety Report 4827530-2 (Version None)
Quarter: 2005Q4

REPORT INFORMATION
  Report Type: 
  Country: None (occurrence: None)
  Receive Date: 20051114
  Receipt Date: 20050909
  Transmission Date: 20060501
  Serious: Yes (Death)
  Sender: FDA-Public Use
  Company Number: GB-BRISTOL-MYERS SQUIBB COMPANY-13107404

PATIENT
  Age: 76 Year
  Sex: Male

DRUGS (5)
  1. ABILIFY [Suspect]
     Indication: SCHIZOPHRENIA, PARANOID TYPE
     Route: 048
     Dates: start: 20050802, end: 20050808
  2. RISPERIDONE [Concomitant]
     Indication: SCHIZOPHRENIA, PARANOID TYPE
     Route: 048
     Dates: start: 20010521, end: 20050808
  3. BENDROFLUMETHIAZIDE [Concomitant]
     Indication: CARDIAC DISORDER
     Route: 048
     Dates: start: 20040727, end: 20050808
  4. AMLODIPINE [Concomitant]
     Indication: CARDIAC DISORDER
     Route: 048
     Dates: start: 20040924, end: 20050808
  5. ASPIRIN [Concomitant]
     Indication: CARDIAC DISORDER
     Route: 048

REACTIONS (1)
  - CARDIAC FAILURE ACUTE [None]
